FAERS Safety Report 9494348 (Version 1)
Quarter: 2013Q3

REPORT INFORMATION
  Report Type: Spontaneous
  Country: US (occurrence: US)
  Receive Date: 20130903
  Receipt Date: 20130903
  Transmission Date: 20140515
  Serious: Yes (Other)
  Sender: FDA-Public Use
  Company Number: US-JNJFOC-20130814415

PATIENT
  Sex: 0

DRUGS (1)
  1. LEVAQUIN [Suspect]
     Indication: PRODUCT USED FOR UNKNOWN INDICATION
     Route: 065

REACTIONS (31)
  - Thrombosis [Unknown]
  - Haemorrhage [Unknown]
  - Chondropathy [Unknown]
  - Urinary incontinence [Unknown]
  - Feeling abnormal [Unknown]
  - Multiple chemical sensitivity [Unknown]
  - Toxicity to various agents [Unknown]
  - Memory impairment [Unknown]
  - Tendon rupture [Unknown]
  - Diplopia [Unknown]
  - Photosensitivity reaction [Unknown]
  - Headache [Unknown]
  - Myalgia [Unknown]
  - Arthralgia [Unknown]
  - Diarrhoea [Unknown]
  - Tremor [Unknown]
  - Vitreous floaters [Unknown]
  - Vertigo [Unknown]
  - Tinnitus [Unknown]
  - Abdominal pain upper [Unknown]
  - Nausea [Unknown]
  - Back pain [Unknown]
  - Insomnia [Unknown]
  - Depersonalisation [Unknown]
  - Anxiety [Unknown]
  - Paraesthesia [Unknown]
  - Contusion [Unknown]
  - Vasodilatation [Unknown]
  - Adverse drug reaction [Unknown]
  - Flatulence [Unknown]
  - Rash [Unknown]
